FAERS Safety Report 11083223 (Version 3)
Quarter: 2015Q2

REPORT INFORMATION
  Report Type: Report from Study
  Country: CA (occurrence: CA)
  Receive Date: 20150501
  Receipt Date: 20150514
  Transmission Date: 20150821
  Serious: Yes (Death, Hospitalization, Other)
  Sender: FDA-Public Use
  Company Number: CA-ABBVIE-15P-028-1382340-00

PATIENT
  Age: 62 Year
  Sex: Female

DRUGS (17)
  1. HOLKIRA PAK [Suspect]
     Active Substance: DASABUVIR\OMBITASVIR\PARITAPREVIR\RITONAVIR
     Indication: HEPATITIS C
     Dosage: 12.5/75/50 MG TABLETS ONCE DAILY AND ONE DASABUVIR 250 MG TABLET TWICE DAILY
     Route: 048
     Dates: start: 20150408
  2. SLOW K [Concomitant]
     Active Substance: POTASSIUM CHLORIDE
     Indication: PRODUCT USED FOR UNKNOWN INDICATION
     Route: 048
  3. RIBAVIRIN. [Suspect]
     Active Substance: RIBAVIRIN
     Indication: HEPATITIS C
     Route: 048
     Dates: start: 20150408
  4. ADVAIR HFA [Concomitant]
     Active Substance: FLUTICASONE PROPIONATE\SALMETEROL XINAFOATE
     Indication: PRODUCT USED FOR UNKNOWN INDICATION
  5. LACTULOSE. [Concomitant]
     Active Substance: LACTULOSE
     Indication: PRODUCT USED FOR UNKNOWN INDICATION
     Route: 048
     Dates: end: 201504
  6. POTASSIUM CHLORIDE. [Concomitant]
     Active Substance: POTASSIUM CHLORIDE
     Indication: PRODUCT USED FOR UNKNOWN INDICATION
  7. METFORMIN [Concomitant]
     Active Substance: METFORMIN HYDROCHLORIDE
     Indication: PRODUCT USED FOR UNKNOWN INDICATION
  8. SPIRIVA [Concomitant]
     Active Substance: TIOTROPIUM BROMIDE MONOHYDRATE
     Indication: PRODUCT USED FOR UNKNOWN INDICATION
     Route: 048
  9. LACTULOSE. [Concomitant]
     Active Substance: LACTULOSE
     Indication: PRODUCT USED FOR UNKNOWN INDICATION
  10. PURG ODAN [Concomitant]
     Indication: PRODUCT USED FOR UNKNOWN INDICATION
  11. COLESEVELAM [Concomitant]
     Active Substance: COLESEVELAM
     Indication: PRODUCT USED FOR UNKNOWN INDICATION
     Route: 048
  12. ACLIDINIUM BROMIDE [Concomitant]
     Active Substance: ACLIDINIUM BROMIDE
     Indication: PRODUCT USED FOR UNKNOWN INDICATION
     Route: 055
  13. ARIPRIN [Concomitant]
     Indication: PRODUCT USED FOR UNKNOWN INDICATION
  14. METOLAZONE. [Concomitant]
     Active Substance: METOLAZONE
     Indication: PRODUCT USED FOR UNKNOWN INDICATION
  15. SALBUTAMOL [Concomitant]
     Active Substance: ALBUTEROL
     Indication: PRODUCT USED FOR UNKNOWN INDICATION
     Dosage: EVERY 4 HOURS
  16. LACTULOSE. [Concomitant]
     Active Substance: LACTULOSE
     Route: 048
     Dates: end: 201504
  17. SERTRALINE [Concomitant]
     Active Substance: SERTRALINE HYDROCHLORIDE
     Indication: PRODUCT USED FOR UNKNOWN INDICATION
     Route: 048

REACTIONS (31)
  - Myocardial infarction [Unknown]
  - Oedema [Unknown]
  - Hypoxia [Unknown]
  - Jaundice [Unknown]
  - Haemorrhage [Unknown]
  - Ascites [Unknown]
  - Gastric antral vascular ectasia [Recovered/Resolved]
  - Oesophageal varices haemorrhage [Recovered/Resolved]
  - Faecal incontinence [Unknown]
  - Dyspnoea [Unknown]
  - Hepatitis C [Fatal]
  - Abdominal pain [Unknown]
  - Chest pain [Unknown]
  - Gastrointestinal haemorrhage [Recovered/Resolved]
  - Retching [Unknown]
  - Faeces discoloured [Unknown]
  - Haemoglobin decreased [Unknown]
  - Fall [Recovered/Resolved]
  - Pallor [Unknown]
  - Pulmonary embolism [Fatal]
  - Haemoglobin decreased [Unknown]
  - Melaena [Unknown]
  - Hypotension [Unknown]
  - Anxiety [Unknown]
  - Aphasia [Unknown]
  - General physical health deterioration [Fatal]
  - Dyspnoea [Recovered/Resolved]
  - Varices oesophageal [Not Recovered/Not Resolved]
  - Oedema peripheral [Not Recovered/Not Resolved]
  - Urinary incontinence [Unknown]
  - Pain [Unknown]

NARRATIVE: CASE EVENT DATE: 2015
